FAERS Safety Report 5685058-4 (Version None)
Quarter: 2008Q1

REPORT INFORMATION
  Report Type: 
  Country: None (occurrence: None)
  Receive Date: 20080328
  Receipt Date: 19970828
  Transmission Date: 20080703
  Serious: Yes (Death)
  Sender: FDA-Public Use
  Company Number: NL-ROCHE-104818

PATIENT
  Age: 67 Year
  Sex: Male

DRUGS (1)
  1. LARIAM [Suspect]
     Indication: MALARIA PROPHYLAXIS
     Route: 048
     Dates: start: 19921221, end: 19921228

REACTIONS (3)
  - DEATH [None]
  - MALAISE [None]
  - NAUSEA [None]
